FAERS Safety Report 15583870 (Version 2)
Quarter: 2018Q4

REPORT INFORMATION
  Report Type: Spontaneous
  Country: MX (occurrence: MX)
  Receive Date: 20181105
  Receipt Date: 20181112
  Transmission Date: 20190205
  Serious: Yes (Other)
  Sender: FDA-Public Use
  Company Number: MX-TEVA-2018-MX-972144

PATIENT
  Age: 24 Year
  Sex: Female

DRUGS (3)
  1. PREDNISONE. [Concomitant]
     Active Substance: PREDNISONE
     Dosage: VO (SIC) QD
  2. AMIKACIN. [Suspect]
     Active Substance: AMIKACIN
     Indication: ACTINOMYCOSIS
     Route: 042
  3. SULFAMETHOXAZOLE/TRIMETHOPRIM [Concomitant]
     Active Substance: SULFAMETHOXAZOLE\TRIMETHOPRIM
     Indication: ACTINOMYCOSIS
     Dosage: SULFAMETHOXAZOLE/ TRIMETHOPRIM: 160/800MG
     Route: 042

REACTIONS (1)
  - Glomerular filtration rate decreased [Unknown]
